FAERS Safety Report 9313660 (Version 1)
Quarter: 2013Q2

REPORT INFORMATION
  Report Type: Spontaneous
  Country: JP (occurrence: JP)
  Receive Date: 20130529
  Receipt Date: 20130529
  Transmission Date: 20140414
  Serious: Yes (Life-Threatening, Hospitalization, Other)
  Sender: FDA-Public Use
  Company Number: JP-AMGEN-JPNSP2013037712

PATIENT
  Age: 64 Year
  Sex: Female

DRUGS (15)
  1. ENBREL [Suspect]
     Indication: RHEUMATOID ARTHRITIS
     Dosage: 25 MG, 2X/WEEK
     Route: 058
     Dates: start: 20080324, end: 20080519
  2. ENBREL [Suspect]
     Dosage: 25 MG, 2X/WEEK
     Route: 058
     Dates: start: 20080519, end: 20081101
  3. FOSAMAX [Concomitant]
     Dosage: UNK
     Route: 048
  4. BIOFERMIN                          /00275501/ [Concomitant]
     Dosage: UNK
     Route: 048
  5. LENDORMIN [Concomitant]
     Dosage: UNK
     Route: 048
  6. BROCIN-CODEINE [Concomitant]
     Dosage: UNK
     Route: 048
     Dates: start: 20081023, end: 200811
  7. GASTER                             /00706001/ [Concomitant]
     Dosage: UNK
     Route: 048
  8. LASIX                              /00032601/ [Concomitant]
     Dosage: UNK
     Route: 048
  9. ISCOTIN                            /00030201/ [Concomitant]
     Dosage: UNK
     Route: 048
     Dates: start: 20080324, end: 20090124
  10. PREDNISOLONE [Concomitant]
     Dosage: UNK
     Route: 048
     Dates: end: 2007
  11. PREDNISOLONE [Concomitant]
     Dosage: UNK
     Route: 065
     Dates: start: 200602
  12. PYDOXAL [Concomitant]
     Dosage: UNK
     Route: 048
     Dates: start: 20080324, end: 20090324
  13. BAKTAR [Concomitant]
     Dosage: UNK
     Route: 048
     Dates: start: 200602
  14. PROGRAF [Concomitant]
     Dosage: UNK
     Route: 048
     Dates: start: 200602
  15. SELBEX [Concomitant]
     Dosage: UNK
     Route: 048

REACTIONS (2)
  - Dermatomyositis [Recovering/Resolving]
  - Interstitial lung disease [Recovering/Resolving]
